FAERS Safety Report 5752202-X (Version None)
Quarter: 2008Q2

REPORT INFORMATION
  Report Type: 
  Country: None (occurrence: None)
  Receive Date: 20080529
  Receipt Date: 20080516
  Transmission Date: 20081010
  Serious: Yes (Death, Other)
  Sender: FDA-Public Use
  Company Number: TR-ELI_LILLY_AND_COMPANY-TR200805005299

PATIENT
  Sex: Male

DRUGS (4)
  1. HUMULIN R [Suspect]
     Indication: DIABETES MELLITUS
     Dosage: 8 U EACH MORNING
     Route: 058
     Dates: start: 20071001
  2. HUMULIN R [Suspect]
     Dosage: 8 U, NOON
     Route: 058
     Dates: start: 20071001
  3. HUMULIN R [Suspect]
     Dosage: 18 U, EACH EVENING
     Route: 058
     Dates: start: 20071001
  4. LEVEMIR [Concomitant]
     Indication: DIABETES MELLITUS
     Dosage: 10 U, EACH NIGHT
     Route: 058

REACTIONS (3)
  - DEATH [None]
  - DUODENAL OPERATION [None]
  - PROCEDURAL COMPLICATION [None]
